FAERS Safety Report 24392499 (Version 1)
Quarter: 2024Q4

REPORT INFORMATION
  Report Type: Spontaneous
  Country: US (occurrence: None)
  Receive Date: 20241002
  Receipt Date: 20241002
  Transmission Date: 20250115
  Serious: Yes (Disabling)
  Sender: Public
  Company Number: None

PATIENT
  Age: 85 Year
  Sex: Male
  Weight: 93.89 kg

DRUGS (9)
  1. PREGABALIN [Suspect]
     Active Substance: PREGABALIN
     Indication: Restless legs syndrome
     Dosage: FREQUENCY : TWICE A DAY;?
     Route: 048
     Dates: start: 20240816, end: 20240821
  2. PANTOPRAZOLE 40MG [Concomitant]
  3. DULOPETINE 60MG [Concomitant]
  4. CARVEDILOL 3.25 MG [Concomitant]
  5. CLOPIDGEL 75 MG QD [Concomitant]
  6. FLOMAX 0.4MG QPM [Concomitant]
  7. CRESTOR 20 MG QD [Concomitant]
  8. TRAMADOL 50MG Q8 AS NEEDED [Concomitant]
  9. NITROGLYCERIN [Concomitant]

REACTIONS (10)
  - Myalgia [None]
  - Asthenia [None]
  - Confusional state [None]
  - Memory impairment [None]
  - Gait disturbance [None]
  - Dysstasia [None]
  - Dizziness [None]
  - Somnolence [None]
  - Arthralgia [None]
  - Nonspecific reaction [None]

NARRATIVE: CASE EVENT DATE: 20240816
